FAERS Safety Report 4958734-6 (Version None)
Quarter: 2006Q1

REPORT INFORMATION
  Report Type: 
  Country: None (occurrence: None)
  Receive Date: 20060330
  Receipt Date: 20050408
  Transmission Date: 20060701
  Serious: Yes (Death, Hospitalization)
  Sender: FDA-Public Use
  Company Number: US-MERCK-0504USA01641

PATIENT
  Age: 56 Year
  Sex: Male
  Weight: 136 kg

DRUGS (9)
  1. VIOXX [Suspect]
     Indication: PAIN MANAGEMENT
     Route: 048
     Dates: start: 20010627, end: 20040701
  2. AVANDIA [Concomitant]
     Route: 065
  3. LASIX [Concomitant]
     Route: 065
  4. GLUCOPHAGE [Concomitant]
     Route: 065
  5. PRAVACHOL [Concomitant]
     Route: 065
  6. PROTONIX [Concomitant]
     Route: 065
  7. SYNTHROID [Concomitant]
     Route: 065
  8. LITHIUM SUCCINATE [Concomitant]
     Route: 065
  9. [THERAPY UNSPECIFIED] [Concomitant]
     Route: 065

REACTIONS (11)
  - CARBON DIOXIDE INCREASED [None]
  - CARDIAC FAILURE CONGESTIVE [None]
  - CEREBRAL INFARCTION [None]
  - CHEST PAIN [None]
  - DEATH [None]
  - DEPRESSED LEVEL OF CONSCIOUSNESS [None]
  - HYPERTENSION [None]
  - HYPOKALAEMIA [None]
  - HYPOMAGNESAEMIA [None]
  - LOCALISED INFECTION [None]
  - SLEEP APNOEA SYNDROME [None]
